FAERS Safety Report 24817004 (Version 1)
Quarter: 2025Q1

REPORT INFORMATION
  Report Type: Spontaneous
  Country: US (occurrence: US)
  Receive Date: 20250108
  Receipt Date: 20250108
  Transmission Date: 20250409
  Serious: No
  Sender: CSL BEHRING
  Company Number: US-BEH-2025190913

PATIENT
  Age: 48 Year
  Sex: Female

DRUGS (3)
  1. HIZENTRA [Suspect]
     Active Substance: HUMAN IMMUNOGLOBULIN G
     Indication: Immunodeficiency common variable
     Dosage: 20 G, QW(STRENGTH 0.2GM/ML)
     Route: 042
     Dates: start: 202002
  2. HYRIMOZ [Concomitant]
     Active Substance: ADALIMUMAB-ADAZ
  3. ICATIBANT [Concomitant]
     Active Substance: ICATIBANT ACETATE

REACTIONS (2)
  - Swelling [Unknown]
  - Swelling face [Unknown]

NARRATIVE: CASE EVENT DATE: 20241226
